FAERS Safety Report 9676189 (Version 1)
Quarter: 2013Q4

REPORT INFORMATION
  Report Type: Spontaneous
  Country: FR (occurrence: FR)
  Receive Date: 20131107
  Receipt Date: 20131107
  Transmission Date: 20140711
  Serious: Yes (Other)
  Sender: FDA-Public Use
  Company Number: FR-ABBVIE-13P-056-1165289-00

PATIENT
  Age: 60 Year
  Sex: Male
  Weight: 82 kg

DRUGS (6)
  1. NORVIR [Suspect]
     Indication: HIV INFECTION
     Route: 065
     Dates: start: 20100923
  2. NORVIR [Suspect]
     Route: 065
     Dates: start: 20130206
  3. TRUVADA [Suspect]
     Indication: HIV INFECTION
     Route: 048
     Dates: start: 20100923
  4. TRUVADA [Suspect]
     Route: 048
     Dates: start: 20130206
  5. REYATAZ [Suspect]
     Indication: HIV INFECTION
     Route: 065
     Dates: start: 20100923
  6. REYATAZ [Suspect]
     Route: 065
     Dates: start: 20130206

REACTIONS (6)
  - Creatinine renal clearance decreased [Recovered/Resolved]
  - Overdose [Unknown]
  - Proteinuria [Recovered/Resolved]
  - Medication error [Unknown]
  - Varicose ulceration [Not Recovered/Not Resolved]
  - Renal impairment [Recovered/Resolved]
